FAERS Safety Report 15564771 (Version 2)
Quarter: 2022Q2

REPORT INFORMATION
  Report Type: Spontaneous
  Country: US (occurrence: US)
  Receive Date: 20181030
  Receipt Date: 20220629
  Transmission Date: 20220721
  Serious: No
  Sender: FDA-Public Use
  Company Number: US-PFIZER INC-2018431423

PATIENT
  Age: 54 Year

DRUGS (3)
  1. LYRICA [Suspect]
     Active Substance: PREGABALIN
     Indication: Pain
     Dosage: 1 DF, 3X/DAY
  2. LYRICA [Suspect]
     Active Substance: PREGABALIN
     Dosage: 1 DF, 2X/DAY
  3. LYRICA [Suspect]
     Active Substance: PREGABALIN
     Dosage: 75 MG, 4X/DAY
     Route: 048

REACTIONS (2)
  - Peripheral swelling [Unknown]
  - Peripheral swelling [Unknown]
